FAERS Safety Report 9690619 (Version 3)
Quarter: 2013Q4

REPORT INFORMATION
  Report Type: Spontaneous
  Country: US (occurrence: US)
  Receive Date: 20131115
  Receipt Date: 20131205
  Transmission Date: 20140711
  Serious: Yes (Hospitalization, Other)
  Sender: FDA-Public Use
  Company Number: US-BAXTER-2013BAX044458

PATIENT
  Age: 42 Year
  Sex: Female

DRUGS (1)
  1. DIANEAL LOW CALCIUM [Suspect]
     Indication: PERITONEAL DIALYSIS
     Route: 033
     Dates: start: 201202

REACTIONS (4)
  - Gastrointestinal bacterial infection [Unknown]
  - Colitis [Recovered/Resolved]
  - Peritonitis bacterial [Recovered/Resolved]
  - Peritoneal dialysis complication [Recovered/Resolved]
